FAERS Safety Report 7973710-7 (Version None)
Quarter: 2011Q4

REPORT INFORMATION
  Report Type: 
  Country: None (occurrence: None)
  Receive Date: 20111213
  Receipt Date: 20111213
  Transmission Date: 20120403
  Serious: Yes (Life-Threatening, Hospitalization, Disabling)
  Sender: FDA-Public Use
  Company Number: None

PATIENT
  Age: 86 Year
  Sex: Female
  Weight: 87.543 kg

DRUGS (4)
  1. CYMBALTA [Suspect]
     Indication: ARTHRITIS
     Dosage: 1 TABLET DAILY
     Dates: start: 20111020, end: 20111023
  2. CYMBALTA [Suspect]
     Indication: PAIN
     Dosage: 1 TABLET DAILY
     Dates: start: 20111020, end: 20111023
  3. CYMBALTA [Suspect]
     Indication: DIABETIC NEUROPATHY
     Dosage: 1 TABLET DAILY
     Dates: start: 20111020, end: 20111023
  4. CYMBALTA [Concomitant]
     Dosage: 2 TABLETS DAILY AFTER 2 WEEKS

REACTIONS (6)
  - DISORIENTATION [None]
  - DECREASED APPETITE [None]
  - BLOOD ELECTROLYTES DECREASED [None]
  - HYPONATRAEMIA [None]
  - DYSSTASIA [None]
  - DIZZINESS [None]
